FAERS Safety Report 5988332-7 (Version None)
Quarter: 2008Q4

REPORT INFORMATION
  Report Type: 
  Country: None (occurrence: None)
  Receive Date: 20081204
  Receipt Date: 20081120
  Transmission Date: 20090506
  Serious: Yes (Hospitalization)
  Sender: FDA-Public Use
  Company Number: A-NJ2006-13560

PATIENT
  Age: 37 Year
  Sex: Female

DRUGS (1)
  1. TRACLEER [Suspect]
     Indication: PULMONARY ARTERIAL HYPERTENSION
     Dosage: ORAL
     Route: 048
     Dates: start: 20030923

REACTIONS (10)
  - BLOOD BILIRUBIN INCREASED [None]
  - CARDIAC FAILURE [None]
  - DISEASE PROGRESSION [None]
  - HEPATOMEGALY [None]
  - HYPOKALAEMIA [None]
  - HYPONATRAEMIA [None]
  - LUNG DISORDER [None]
  - NAUSEA [None]
  - PULMONARY ARTERIAL HYPERTENSION [None]
  - RETCHING [None]
